FAERS Safety Report 4996718-2 (Version None)
Quarter: 2006Q2

REPORT INFORMATION
  Report Type: 
  Country: None (occurrence: None)
  Receive Date: 20060509
  Receipt Date: 20050125
  Transmission Date: 20061013
  Serious: Yes (Hospitalization, Other)
  Sender: FDA-Public Use
  Company Number: US-MERCK-0501USA04138

PATIENT
  Age: 70 Year
  Sex: Male
  Weight: 114 kg

DRUGS (1)
  1. VIOXX [Suspect]
     Indication: ARTHRITIS
     Route: 048
     Dates: start: 19990913, end: 20030110

REACTIONS (7)
  - BLOOD CHOLESTEROL INCREASED [None]
  - BUNDLE BRANCH BLOCK LEFT [None]
  - COUGH [None]
  - HYDRONEPHROSIS [None]
  - JOINT ARTHROPLASTY [None]
  - SYSTOLIC HYPERTENSION [None]
  - TRANSIENT ISCHAEMIC ATTACK [None]
